FAERS Safety Report 21686928 (Version 1)
Quarter: 2022Q4

REPORT INFORMATION
  Report Type: Spontaneous
  Country: NL (occurrence: NL)
  Receive Date: 20221206
  Receipt Date: 20221206
  Transmission Date: 20230113
  Serious: Yes (Hospitalization)
  Sender: FDA-Public Use
  Company Number: None

PATIENT
  Age: 71 Year
  Sex: Female
  Weight: 73.5 kg

DRUGS (8)
  1. AZACITIDINE [Suspect]
     Active Substance: AZACITIDINE
     Indication: Product used for unknown indication
     Dosage: INJECTIE, 1 MG/MG (MILLIGRAM PER MILLIGRAM),
     Dates: start: 20220524, end: 20220529
  2. PREDNISOLON CAPSULE 10MG / PREDNISOLON CAPSULE 10MG FNA MR [Concomitant]
     Indication: Product used for unknown indication
     Dosage: CAPSULE, 10 MG (MILLIGRAM)
  3. ONDANSETRON SMELTTABLET 8MG / Brand name not specified [Concomitant]
     Indication: Product used for unknown indication
     Dosage: SMELTTABLET, 8 MG (MILLIGRAM)
  4. ALENDRONIC ACID [Concomitant]
     Active Substance: ALENDRONIC ACID
     Indication: Product used for unknown indication
     Dosage: TABLET, 70 MG (MILLIGRAM)
  5. MACROGOL/ZOUTEN PDR V DRANK (MOVIC/MOLAX/LAXT/GEN) / MACROGOL EN ELEKT [Concomitant]
     Indication: Product used for unknown indication
     Dosage: POEDER VOOR DRANK (POWDER FOR DRINKS)
  6. LEVOTHYROXINE CAPSULE 100UG / TIROSINT CAPSULE 100MCG [Concomitant]
     Indication: Product used for unknown indication
     Dosage: CAPSULE, 100 ?G (MICROGRAM)
  7. PANTOPRAZOLE [Concomitant]
     Active Substance: PANTOPRAZOLE
     Indication: Product used for unknown indication
     Dosage: MAAGSAPRESISTENTE TABLET, 40 MG (MILLIGRAM)
  8. CALCIUMCARB/COLECALC KAUWTB 1,25G/800IE (500MG CA) / CALCI CHEW D3 KAU [Concomitant]
     Indication: Product used for unknown indication
     Dosage: KAUWTABLET, 1,25 G (GRAM)/800 EENHEDEN (CHEWABLE TABLET, 1.25 G (G)/800 UNITS)

REACTIONS (4)
  - Hypernatraemia [Recovering/Resolving]
  - Renal impairment [Recovering/Resolving]
  - Vomiting [Recovering/Resolving]
  - Nausea [Recovering/Resolving]

NARRATIVE: CASE EVENT DATE: 20220531
